FAERS Safety Report 6062811-9 (Version None)
Quarter: 2009Q1

REPORT INFORMATION
  Report Type: 
  Country: None (occurrence: None)
  Receive Date: 20090203
  Receipt Date: 20090126
  Transmission Date: 20090719
  Serious: Yes (Hospitalization)
  Sender: FDA-Public Use
  Company Number: JP-AMGEN-US323659

PATIENT
  Sex: Female
  Weight: 55 kg

DRUGS (15)
  1. ENBREL [Suspect]
     Indication: RHEUMATOID ARTHRITIS
     Route: 058
     Dates: start: 20080811, end: 20081013
  2. ENBREL [Suspect]
     Dosage: PREVIOUSLY ON LYOPHILIZED 25 MG TWICE WEEKLY
     Route: 058
     Dates: start: 20060420
  3. RHEUMATREX [Suspect]
     Indication: RHEUMATOID ARTHRITIS
     Route: 048
     Dates: start: 20060725, end: 20080623
  4. RHEUMATREX [Suspect]
     Route: 048
     Dates: start: 20080624, end: 20081006
  5. ISONIAZID [Concomitant]
     Indication: PROPHYLAXIS
     Route: 048
     Dates: start: 20060419, end: 20070114
  6. PYDOXAL [Concomitant]
     Indication: PROPHYLAXIS
     Route: 048
     Dates: start: 20060419, end: 20070114
  7. HYPEN [Concomitant]
     Indication: RHEUMATOID ARTHRITIS
     Route: 048
     Dates: start: 20050822, end: 20080331
  8. BIOFERMIN [Concomitant]
     Route: 048
     Dates: start: 20070205, end: 20080810
  9. LIPITOR [Concomitant]
     Route: 048
  10. AMARYL [Concomitant]
     Route: 048
  11. MICARDIS [Concomitant]
     Route: 048
  12. ALLORINE [Concomitant]
     Route: 048
  13. CARDENALIN [Concomitant]
     Route: 048
  14. LASIX [Concomitant]
     Route: 048
  15. BASEN [Concomitant]
     Route: 048

REACTIONS (1)
  - LYMPH NODE TUBERCULOSIS [None]
